FAERS Safety Report 6752608-6 (Version None)
Quarter: 2010Q2

REPORT INFORMATION
  Report Type: 
  Country: None (occurrence: None)
  Receive Date: 20100601
  Receipt Date: 20100601
  Transmission Date: 20101027
  Serious: Yes (Other)
  Sender: FDA-Public Use
  Company Number: None

PATIENT
  Age: 30 Year
  Sex: Female
  Weight: 63.5036 kg

DRUGS (1)
  1. DOXYCYCLINE [Suspect]
     Indication: ACNE
     Dosage: 100 MG 1 PER DAY PO
     Route: 048
     Dates: start: 20100424, end: 20100524

REACTIONS (6)
  - ABDOMINAL DISCOMFORT [None]
  - CHEST PAIN [None]
  - MIDDLE INSOMNIA [None]
  - ODYNOPHAGIA [None]
  - PAIN [None]
  - SENSATION OF FOREIGN BODY [None]
